FAERS Safety Report 11791348 (Version 2)
Quarter: 2016Q1

REPORT INFORMATION
  Report Type: Spontaneous
  Country: US (occurrence: US)
  Receive Date: 20151201
  Receipt Date: 20160104
  Transmission Date: 20160525
  Serious: No
  Sender: FDA-Public Use
  Company Number: US-TOLMAR INC.-1044871

PATIENT
  Age: 69 Year
  Sex: Male
  Weight: 120.45 kg

DRUGS (1)
  1. KETOCONAZOLE SHAMPOO, 2% [Suspect]
     Active Substance: KETOCONAZOLE
     Indication: PRURITUS
     Route: 061

REACTIONS (4)
  - Product physical consistency issue [None]
  - Pruritus [Recovered/Resolved]
  - Liquid product physical issue [Unknown]
  - Product quality issue [None]
